FAERS Safety Report 22040790 (Version 4)
Quarter: 2023Q1

REPORT INFORMATION
  Report Type: Spontaneous
  Country: US (occurrence: US)
  Receive Date: 20230227
  Receipt Date: 20230310
  Transmission Date: 20230418
  Serious: Yes (Hospitalization)
  Sender: FDA-Public Use
  Company Number: US-ALKERMES INC.-ALK-2023-000776

PATIENT
  Age: 39 Year
  Sex: Male
  Weight: 156.46 kg

DRUGS (1)
  1. ARISTADA [Suspect]
     Active Substance: ARIPIPRAZOLE LAUROXIL
     Indication: Schizophrenia
     Dosage: 882 MILLIGRAM, QMO
     Route: 030

REACTIONS (8)
  - Ankle fracture [Recovering/Resolving]
  - Rib fracture [Recovering/Resolving]
  - Femur fracture [Recovering/Resolving]
  - Road traffic accident [Recovering/Resolving]
  - Gait inability [Unknown]
  - Dysstasia [Unknown]
  - Therapeutic product effect incomplete [Unknown]
  - Product administered at inappropriate site [Recovered/Resolved]

NARRATIVE: CASE EVENT DATE: 20230106
